FAERS Safety Report 11617648 (Version 1)
Quarter: 2015Q4

REPORT INFORMATION
  Report Type: Report from Study
  Country: US (occurrence: US)
  Receive Date: 20151009
  Receipt Date: 20151009
  Transmission Date: 20160304
  Serious: No
  Sender: FDA-Public Use
  Company Number: US-GLAXOSMITHKLINE-US2015GSK142456

PATIENT
  Age: 56 Year
  Sex: Male
  Weight: 84.35 kg

DRUGS (2)
  1. PEGASYS [Concomitant]
     Active Substance: PEGINTERFERON ALFA-2A
     Indication: ANTIVIRAL TREATMENT
     Dosage: UNK, WE
     Route: 058
     Dates: start: 20150610, end: 20150828
  2. ELTROMBOPAG TABLET [Suspect]
     Active Substance: ELTROMBOPAG
     Indication: THROMBOCYTOPENIA
     Dosage: 1 MG, 1D
     Route: 048
     Dates: start: 20150619, end: 20150903

REACTIONS (1)
  - Thrombocytopenia [Recovering/Resolving]

NARRATIVE: CASE EVENT DATE: 20150620
